FAERS Safety Report 20227988 (Version 1)
Quarter: 2021Q4

REPORT INFORMATION
  Report Type: Spontaneous
  Country: US (occurrence: None)
  Receive Date: 20211224
  Receipt Date: 20211224
  Transmission Date: 20220303
  Serious: Yes (Other)
  Sender: FDA-Public Use
  Company Number: US-ROCHE-2987092

PATIENT
  Age: 91 Year
  Sex: Male

DRUGS (2)
  1. ERIVEDGE [Suspect]
     Active Substance: VISMODEGIB
     Indication: Basal cell carcinoma
     Dosage: NO
     Route: 065
  2. ERIVEDGE [Suspect]
     Active Substance: VISMODEGIB
     Dosage: UNKNOWN
     Route: 065

REACTIONS (1)
  - Cerebrovascular accident [Unknown]
